FAERS Safety Report 23464835 (Version 1)
Quarter: 2024Q1

REPORT INFORMATION
  Report Type: Spontaneous
  Country: US (occurrence: US)
  Receive Date: 20240201
  Receipt Date: 20240201
  Transmission Date: 20240409
  Serious: No
  Sender: FDA-Public Use
  Company Number: US-BRISTOL-MYERS SQUIBB COMPANY-2024-016191

PATIENT
  Age: 62 Year
  Sex: Male
  Weight: 79.83 kg

DRUGS (1)
  1. REVLIMID [Suspect]
     Active Substance: LENALIDOMIDE
     Indication: Plasma cell myeloma
     Route: 048
     Dates: start: 20240101

REACTIONS (5)
  - Fatigue [Unknown]
  - Diarrhoea [Unknown]
  - Feeling abnormal [Unknown]
  - Rash [Recovered/Resolved]
  - Off label use [Unknown]
